FAERS Safety Report 9008665 (Version 2)
Quarter: 2013Q1

REPORT INFORMATION
  Report Type: Spontaneous
  Country: JP (occurrence: JP)
  Receive Date: 20130111
  Receipt Date: 20130122
  Transmission Date: 20140127
  Serious: Yes (Hospitalization)
  Sender: FDA-Public Use
  Company Number: JP-PFIZER INC-2012320272

PATIENT
  Sex: 0

DRUGS (2)
  1. XALATAN [Suspect]
     Dosage: 2 DROPS (1 DROP PER EYE) 1X/DAY
     Route: 047
  2. AIPHAGAN [Concomitant]
     Dosage: 2 DROPS/DAY
     Route: 047

REACTIONS (1)
  - Mental disorder [Unknown]
